FAERS Safety Report 26133637 (Version 1)
Quarter: 2025Q4

REPORT INFORMATION
  Report Type: Spontaneous
  Country: CN (occurrence: CN)
  Receive Date: 20251209
  Receipt Date: 20251209
  Transmission Date: 20260118
  Serious: Yes (Other)
  Sender: ALKEM
  Company Number: CN-ALKEM LABORATORIES LIMITED-CN-ALKEM-2025-10247

PATIENT
  Age: 23 Month
  Sex: Male

DRUGS (27)
  1. LINEZOLID [Suspect]
     Active Substance: LINEZOLID
     Indication: Infection prophylaxis
     Dosage: UNK
     Route: 065
  2. LINEZOLID [Suspect]
     Active Substance: LINEZOLID
     Indication: Supportive care
  3. LINEZOLID [Suspect]
     Active Substance: LINEZOLID
     Indication: Streptococcus test positive
  4. LINEZOLID [Suspect]
     Active Substance: LINEZOLID
     Indication: Toxic shock syndrome streptococcal
  5. LINEZOLID [Suspect]
     Active Substance: LINEZOLID
     Indication: Meningitis bacterial
  6. VANCOMYCIN [Suspect]
     Active Substance: VANCOMYCIN
     Indication: Infection prophylaxis
     Dosage: UNK
     Route: 065
  7. VANCOMYCIN [Suspect]
     Active Substance: VANCOMYCIN
     Indication: Supportive care
  8. VANCOMYCIN [Suspect]
     Active Substance: VANCOMYCIN
     Indication: Septic shock
  9. VANCOMYCIN [Suspect]
     Active Substance: VANCOMYCIN
     Indication: Sepsis
  10. VANCOMYCIN [Suspect]
     Active Substance: VANCOMYCIN
     Indication: Toxic shock syndrome streptococcal
  11. VANCOMYCIN [Suspect]
     Active Substance: VANCOMYCIN
     Indication: Meningitis bacterial
  12. HYDROCORTISONE [Suspect]
     Active Substance: HYDROCORTISONE
     Indication: Petechiae
     Dosage: UNK
     Route: 042
  13. HYDROCORTISONE [Suspect]
     Active Substance: HYDROCORTISONE
     Indication: Pyrexia
  14. HYDROCORTISONE [Suspect]
     Active Substance: HYDROCORTISONE
     Indication: Cough
  15. MEROPENEM [Suspect]
     Active Substance: MEROPENEM
     Indication: Infection prophylaxis
     Dosage: UNK
     Route: 065
  16. MEROPENEM [Suspect]
     Active Substance: MEROPENEM
     Indication: Supportive care
  17. MEROPENEM [Suspect]
     Active Substance: MEROPENEM
     Indication: Sepsis
  18. MEROPENEM [Suspect]
     Active Substance: MEROPENEM
     Indication: Septic shock
  19. MEROPENEM [Suspect]
     Active Substance: MEROPENEM
     Indication: Meningitis bacterial
  20. PENICILLIN G [Suspect]
     Active Substance: PENICILLIN G
     Indication: Infection prophylaxis
     Dosage: UNK
     Route: 065
  21. PENICILLIN G [Suspect]
     Active Substance: PENICILLIN G
     Indication: Supportive care
  22. PENICILLIN G [Suspect]
     Active Substance: PENICILLIN G
     Indication: Streptococcus test positive
  23. PENICILLIN G [Suspect]
     Active Substance: PENICILLIN G
     Indication: Meningitis bacterial
  24. AZITHROMYCIN [Concomitant]
     Active Substance: AZITHROMYCIN
     Indication: Petechiae
     Dosage: UNK
     Route: 042
  25. AZITHROMYCIN [Concomitant]
     Active Substance: AZITHROMYCIN
     Indication: Cough
  26. AZITHROMYCIN [Concomitant]
     Active Substance: AZITHROMYCIN
     Indication: Pyrexia
  27. IBUPROFEN [Concomitant]
     Active Substance: IBUPROFEN
     Indication: Pyrexia
     Dosage: UNK
     Route: 065

REACTIONS (6)
  - Multiple organ dysfunction syndrome [Unknown]
  - Sepsis [Unknown]
  - Septic shock [Unknown]
  - Meningitis bacterial [Unknown]
  - Toxic shock syndrome streptococcal [Unknown]
  - Drug ineffective [Unknown]
